FAERS Safety Report 6934486-5 (Version None)
Quarter: 2010Q3

REPORT INFORMATION
  Report Type: 
  Country: None (occurrence: None)
  Receive Date: 20100820
  Receipt Date: 20100812
  Transmission Date: 20110219
  Serious: Yes (Other)
  Sender: FDA-Public Use
  Company Number: US-CELGENEUS-163-21880-09041820

PATIENT
  Sex: Male

DRUGS (5)
  1. REVLIMID [Suspect]
     Indication: MULTIPLE MYELOMA
     Route: 048
     Dates: start: 20090121, end: 20090716
  2. REVLIMID [Suspect]
     Route: 048
     Dates: start: 20100401
  3. REVLIMID [Suspect]
     Route: 048
     Dates: start: 20100701
  4. REVLIMID [Suspect]
     Route: 046
  5. ASPIRIN [Concomitant]
     Indication: PRODUCT USED FOR UNKNOWN INDICATION
     Route: 065

REACTIONS (3)
  - ASTHENIA [None]
  - DEAFNESS [None]
  - TINNITUS [None]
